FAERS Safety Report 6335932-0 (Version None)
Quarter: 2009Q3

REPORT INFORMATION
  Report Type: 
  Country: None (occurrence: None)
  Receive Date: 20090831
  Receipt Date: 20090831
  Transmission Date: 20100115
  Serious: Yes (Other)
  Sender: FDA-Public Use
  Company Number: None

PATIENT
  Sex: Female
  Weight: 44.9061 kg

DRUGS (2)
  1. CIPROFLOXACIN [Suspect]
     Indication: BRONCHITIS
     Dosage: 1 TABLET TWICE DAILY MOUTH
     Route: 048
     Dates: start: 20090715, end: 20090725
  2. CIPROFLOXACIN [Suspect]
     Indication: SINUSITIS
     Dosage: 1 TABLET TWICE DAILY MOUTH
     Route: 048
     Dates: start: 20090715, end: 20090725

REACTIONS (21)
  - ARTHRALGIA [None]
  - BURNING SENSATION [None]
  - CHEST DISCOMFORT [None]
  - CONTUSION [None]
  - DIZZINESS [None]
  - DYSPNOEA [None]
  - HEADACHE [None]
  - HEART RATE IRREGULAR [None]
  - HYPOAESTHESIA [None]
  - INSOMNIA [None]
  - MUSCULAR WEAKNESS [None]
  - MYALGIA [None]
  - NAUSEA [None]
  - OROPHARYNGEAL PAIN [None]
  - PAIN [None]
  - PARAESTHESIA [None]
  - POLYURIA [None]
  - RASH PRURITIC [None]
  - SWELLING FACE [None]
  - TENDON PAIN [None]
  - VISUAL IMPAIRMENT [None]
